FAERS Safety Report 5705794-0 (Version None)
Quarter: 2008Q2

REPORT INFORMATION
  Report Type: 
  Country: None (occurrence: None)
  Receive Date: 20080411
  Receipt Date: 20061228
  Transmission Date: 20081010
  Serious: Yes (Death, Life-Threatening, Hospitalization)
  Sender: FDA-Public Use
  Company Number: 2002PL000073

PATIENT
  Age: 18 Year
  Sex: Male
  Weight: 74 kg

DRUGS (15)
  1. IMURAN [Suspect]
     Indication: CROHN'S DISEASE
     Dosage: 75 MG; PO; 100 MG; PO; 150 MG; PO
     Route: 048
     Dates: start: 19970325
  2. IMURAN [Suspect]
     Indication: CROHN'S DISEASE
     Dosage: 75 MG; PO; 100 MG; PO; 150 MG; PO
     Route: 048
     Dates: start: 19971201
  3. IMURAN [Suspect]
     Indication: CROHN'S DISEASE
     Dosage: 75 MG; PO; 100 MG; PO; 150 MG; PO
     Route: 048
     Dates: start: 19990614
  4. REMICADE [Suspect]
     Indication: CROHN'S DISEASE
     Dosage: 5 MG/KG; QD; IV; 5 MG/KG;QD; IV; 5 MG/KG; QD; IV
     Route: 042
     Dates: start: 20011024, end: 20011024
  5. REMICADE [Suspect]
     Indication: CROHN'S DISEASE
     Dosage: 5 MG/KG; QD; IV; 5 MG/KG;QD; IV; 5 MG/KG; QD; IV
     Route: 042
     Dates: start: 20020225, end: 20020225
  6. REMICADE [Suspect]
     Indication: CROHN'S DISEASE
     Dosage: 5 MG/KG; QD; IV; 5 MG/KG;QD; IV; 5 MG/KG; QD; IV
     Route: 042
     Dates: start: 20020522, end: 20020522
  7. PREDNISONE [Concomitant]
  8. ENTOCORT EC [Concomitant]
  9. CALCIUM [Concomitant]
  10. IRON [Concomitant]
  11. BUDESONIDE [Concomitant]
  12. VITAMIN CAP [Concomitant]
  13. PROBIOTICA [Concomitant]
  14. VITAMIN E [Concomitant]
  15. MACROBID [Concomitant]

REACTIONS (24)
  - ANOREXIA [None]
  - BLOOD LACTATE DEHYDROGENASE INCREASED [None]
  - BLOOD URIC ACID DECREASED [None]
  - BONE PAIN [None]
  - CONVULSION [None]
  - DIARRHOEA [None]
  - HEADACHE [None]
  - HYPOTENSION [None]
  - JOINT SWELLING [None]
  - LYMPHADENOPATHY [None]
  - MUCOSAL INFLAMMATION [None]
  - MULTI-ORGAN FAILURE [None]
  - NEUTROPENIA [None]
  - PLEURAL EFFUSION [None]
  - PYREXIA [None]
  - RECTAL HAEMORRHAGE [None]
  - RENAL FAILURE [None]
  - SHOCK [None]
  - SMALL INTESTINAL ULCER HAEMORRHAGE [None]
  - SPLENIC INFARCTION [None]
  - SPLENOMEGALY [None]
  - T-CELL LYMPHOMA [None]
  - TUMOUR LYSIS SYNDROME [None]
  - WEIGHT DECREASED [None]
